FAERS Safety Report 9571109 (Version 3)
Quarter: 2013Q4

REPORT INFORMATION
  Report Type: Spontaneous
  Country: JP (occurrence: JP)
  Receive Date: 20131001
  Receipt Date: 20131112
  Transmission Date: 20140711
  Serious: Yes (Life-Threatening, Hospitalization)
  Sender: FDA-Public Use
  Company Number: JP-CELGENEUS-087-21660-13091234

PATIENT
  Age: 59 Year
  Sex: Male
  Weight: 45 kg

DRUGS (9)
  1. ABRAXANE [Suspect]
     Indication: NON-SMALL CELL LUNG CANCER
     Route: 041
     Dates: start: 20130813, end: 20130813
  2. ABRAXANE [Suspect]
     Indication: LUNG SQUAMOUS CELL CARCINOMA METASTATIC
  3. NAIXAN [Concomitant]
     Indication: TUMOUR ASSOCIATED FEVER
     Dosage: 300 MILLIGRAM
     Route: 048
     Dates: start: 20130516
  4. TAKEPRON [Concomitant]
     Indication: PRODUCT USED FOR UNKNOWN INDICATION
     Route: 065
  5. ASPARA-CA [Concomitant]
     Indication: HYPOCALCAEMIA
     Dosage: 600 MILLIGRAM
     Route: 048
     Dates: start: 20120828
  6. SULPIRIDE [Concomitant]
     Indication: DECREASED APPETITE
     Dosage: 150 MILLIGRAM
     Route: 048
     Dates: start: 20130529
  7. MUCOSAL [Concomitant]
     Indication: SPUTUM INCREASED
     Dosage: 30 MILLIGRAM
     Route: 065
     Dates: start: 20130813
  8. METHISTA [Concomitant]
     Indication: SPUTUM INCREASED
     Dosage: 750 MILLIGRAM
     Route: 048
     Dates: start: 20130821
  9. MEROPENEM HYDRATE [Concomitant]
     Indication: PRODUCT USED FOR UNKNOWN INDICATION
     Dosage: 3 GRAM
     Route: 065
     Dates: start: 20130903, end: 20130906

REACTIONS (2)
  - Interstitial lung disease [Recovering/Resolving]
  - Neutropenia [Recovered/Resolved]
